FAERS Safety Report 25478579 (Version 2)
Quarter: 2025Q3

REPORT INFORMATION
  Report Type: Report from Study
  Country: US (occurrence: US)
  Receive Date: 20250625
  Receipt Date: 20250715
  Transmission Date: 20251021
  Serious: Yes (Other)
  Sender: ACADIA PHARMACEUTICALS
  Company Number: US-ACADIA PHARMACEUTICALS INC.-ACA-2025-PIM-007444

PATIENT
  Sex: Male

DRUGS (18)
  1. NUPLAZID [Suspect]
     Active Substance: PIMAVANSERIN TARTRATE
     Indication: Parkinson^s disease
     Dosage: 20 MILLIGRAM, QD
     Route: 048
     Dates: start: 202506
  2. LACTULOSE [Concomitant]
     Active Substance: LACTULOSE
  3. MAGNESIUM [Concomitant]
     Active Substance: MAGNESIUM
  4. TYLENOL [Concomitant]
     Active Substance: ACETAMINOPHEN
  5. DOCUSATE [Concomitant]
     Active Substance: DOCUSATE
  6. SIMETHICONE (DIMETHICONE) [Concomitant]
     Active Substance: DIMETHICONE
  7. BACLOFEN [Concomitant]
     Active Substance: BACLOFEN
  8. MELATONIN [Concomitant]
     Active Substance: MELATONIN
  9. ELIQUIS [Concomitant]
     Active Substance: APIXABAN
  10. ATORVASTATIN [Concomitant]
     Active Substance: ATORVASTATIN
  11. COENZYME Q10 [Concomitant]
     Active Substance: DIETARY SUPPLEMENT\UBIDECARENONE
  12. CLARITIN [Concomitant]
     Active Substance: LORATADINE
  13. FOLIC ACID [Concomitant]
     Active Substance: FOLIC ACID
  14. PROBIOTICS NOS [Concomitant]
     Active Substance: PROBIOTICS NOS
  15. ALENDRONATE [Concomitant]
     Active Substance: ALENDRONATE SODIUM
  16. RIVASTIGMINE [Concomitant]
     Active Substance: RIVASTIGMINE
  17. VITAMIN D NOS [Concomitant]
     Active Substance: CHOLECALCIFEROL\ERGOCALCIFEROL
  18. CARBIDOPA [Concomitant]
     Active Substance: CARBIDOPA

REACTIONS (3)
  - Hallucination [Not Recovered/Not Resolved]
  - Hallucination, visual [Unknown]
  - Restlessness [Not Recovered/Not Resolved]
